FAERS Safety Report 8074549-7 (Version None)
Quarter: 2012Q1

REPORT INFORMATION
  Report Type: 
  Country: None (occurrence: None)
  Receive Date: 20120126
  Receipt Date: 20120119
  Transmission Date: 20120608
  Serious: Yes (Death)
  Sender: FDA-Public Use
  Company Number: JP-ELI_LILLY_AND_COMPANY-JP201110000768

PATIENT
  Sex: Male
  Weight: 73 kg

DRUGS (7)
  1. ADCIRCA [Suspect]
     Indication: PULMONARY ARTERIAL HYPERTENSION
     Dosage: 40 MG, QD
     Route: 048
     Dates: start: 20110917, end: 20111003
  2. VOLIBRIS [Concomitant]
     Indication: PULMONARY ARTERIAL HYPERTENSION
     Dosage: 2.5 MG, QD
     Route: 048
     Dates: start: 20110921
  3. REVATIO [Concomitant]
     Indication: PULMONARY ARTERIAL HYPERTENSION
     Dosage: 1 DF, TID
     Route: 048
     Dates: start: 20110301, end: 20110901
  4. DIART [Concomitant]
     Dosage: 30 MG, QD
     Route: 048
     Dates: start: 20110301, end: 20111006
  5. MUCOFILIN [Concomitant]
     Indication: INTERSTITIAL LUNG DISEASE
     Dosage: UNK
     Dates: start: 20100902, end: 20111006
  6. OMEPRAZOLE [Concomitant]
     Dosage: 10 MG, QD
     Route: 048
  7. PIRFENIDONE [Concomitant]
     Indication: INTERSTITIAL LUNG DISEASE
     Dosage: 600 MG, TID
     Route: 048
     Dates: start: 20110310, end: 20111006

REACTIONS (2)
  - OFF LABEL USE [None]
  - INTERSTITIAL LUNG DISEASE [None]
